FAERS Safety Report 9713915 (Version 2)
Quarter: 2014Q1

REPORT INFORMATION
  Report Type: Spontaneous
  Country: US (occurrence: US)
  Receive Date: 20131126
  Receipt Date: 20140208
  Transmission Date: 20141002
  Serious: No
  Sender: FDA-Public Use
  Company Number: US-009507513-1311USA009048

PATIENT
  Age: 40 Year
  Sex: Male
  Weight: 97.51 kg

DRUGS (2)
  1. CLARITIN-D-24 [Suspect]
     Indication: SINUSITIS
     Dosage: 10 MG, ONCE
     Route: 048
     Dates: start: 20131104, end: 20131112
  2. CARLSON SUPER TWO DAILY [Concomitant]
     Indication: PRODUCT USED FOR UNKNOWN INDICATION
     Dosage: UNK, UNKNOWN

REACTIONS (3)
  - Medication residue present [Unknown]
  - Off label use [Unknown]
  - Drug ineffective [Unknown]
